FAERS Safety Report 5549718-8 (Version None)
Quarter: 2007Q4

REPORT INFORMATION
  Report Type: 
  Country: None (occurrence: None)
  Receive Date: 20071212
  Receipt Date: 20070510
  Transmission Date: 20080405
  Serious: No
  Sender: FDA-Public Use
  Company Number: US-AMGEN-KDL224356

PATIENT
  Sex: Female

DRUGS (2)
  1. ENBREL [Suspect]
     Indication: RHEUMATOID ARTHRITIS
     Route: 058
     Dates: start: 20060601
  2. PLAQUENIL [Concomitant]
     Route: 048
     Dates: start: 20061115

REACTIONS (7)
  - INJECTION SITE PAIN [None]
  - PAIN [None]
  - PYREXIA [None]
  - RESPIRATORY TRACT CONGESTION [None]
  - RHEUMATOID ARTHRITIS [None]
  - SINUS CONGESTION [None]
  - WHITE BLOOD CELL COUNT INCREASED [None]
